FAERS Safety Report 8892992 (Version 1)
Quarter: 2012Q4

REPORT INFORMATION
  Report Type: 
  Country: US (occurrence: US)
  Receive Date: 20121107
  Receipt Date: 20121107
  Transmission Date: 20130627
  Serious: No
  Sender: FDA-Public Use
  Company Number: US-AMGEN-USASP2011059496

PATIENT
  Age: 46 Year
  Sex: Male
  Weight: 419 kg

DRUGS (12)
  1. ENBREL [Suspect]
     Indication: PRODUCT USED FOR UNKNOWN INDICATION
     Dosage: 50 mg, qwk
  2. PROTONIX [Concomitant]
     Dosage: 20 mg, UNK
  3. AMBIEN [Concomitant]
     Dosage: 5 mg, UNK
  4. FLUTICASONE                        /00972202/ [Concomitant]
     Dosage: 0.50 mg, UNK
  5. NORVASC [Concomitant]
     Dosage: 5 mg, UNK
  6. ZITHROMAX [Concomitant]
     Dosage: 500 mg, UNK
  7. MINERAL OIL EMULSION [Concomitant]
  8. FOLIC ACID [Concomitant]
     Dosage: 1 mg, UNK
  9. ADVAIR HFA [Concomitant]
  10. LEVOTHYROXIN [Concomitant]
     Dosage: .25 mg, UNK
  11. ALLOPURINOL [Concomitant]
     Dosage: 100 mg, UNK
  12. PROAIR HFA [Concomitant]

REACTIONS (2)
  - Tinnitus [Unknown]
  - Sinusitis [Unknown]
